FAERS Safety Report 12632146 (Version 2)
Quarter: 2016Q3

REPORT INFORMATION
  Report Type: Spontaneous
  Country: US (occurrence: US)
  Receive Date: 20160808
  Receipt Date: 20160808
  Transmission Date: 20161109
  Serious: No
  Sender: FDA-Public Use
  Company Number: US-BEH-2016061980

PATIENT
  Sex: Female
  Weight: 65 kg

DRUGS (15)
  1. ACETAMINOPHEN. [Concomitant]
     Active Substance: ACETAMINOPHEN
  2. PROGESTERONE. [Concomitant]
     Active Substance: PROGESTERONE
  3. HIZENTRA [Suspect]
     Active Substance: HUMAN IMMUNOGLOBULIN G
     Route: 058
  4. SINGULAIR [Concomitant]
     Active Substance: MONTELUKAST SODIUM
  5. ADVAIR HFA [Concomitant]
     Active Substance: FLUTICASONE PROPIONATE\SALMETEROL XINAFOATE
  6. HIZENTRA [Suspect]
     Active Substance: HUMAN IMMUNOGLOBULIN G
     Indication: IMMUNODEFICIENCY
     Route: 058
  7. DIPHENHYDRAMINE. [Concomitant]
     Active Substance: DIPHENHYDRAMINE
  8. LMX [Concomitant]
     Active Substance: LIDOCAINE
  9. LIDOCAINE. [Concomitant]
     Active Substance: LIDOCAINE
  10. EPIPEN [Concomitant]
     Active Substance: EPINEPHRINE
  11. AMOXICILLIN. [Concomitant]
     Active Substance: AMOXICILLIN
  12. PREDNISONE. [Concomitant]
     Active Substance: PREDNISONE
  13. ESTRADIOL. [Concomitant]
     Active Substance: ESTRADIOL
  14. PROAIR HFA [Concomitant]
     Active Substance: ALBUTEROL SULFATE
  15. HIZENTRA [Suspect]
     Active Substance: HUMAN IMMUNOGLOBULIN G
     Route: 058

REACTIONS (1)
  - Headache [Unknown]
